FAERS Safety Report 9344193 (Version 1)
Quarter: 2013Q2

REPORT INFORMATION
  Report Type: Spontaneous
  Country: US (occurrence: None)
  Receive Date: 20130610
  Receipt Date: 20130610
  Transmission Date: 20140414
  Serious: Yes (Hospitalization)
  Sender: FDA-Public Use
  Company Number: NPIL/SEV/H/2013/60

PATIENT
  Age: 55 Year
  Sex: Female

DRUGS (7)
  1. SEVOFLURANE [Suspect]
     Indication: ANAESTHESIA
     Dosage: 1.8 END TIDAL%
  2. PROPOFOL [Concomitant]
  3. FENTANYL [Concomitant]
  4. ROCURONIUM [Concomitant]
  5. METFORMIN [Concomitant]
  6. LISINOPRIL [Concomitant]
  7. SIMVASTATIN [Concomitant]

REACTIONS (7)
  - Depressed level of consciousness [None]
  - Tongue disorder [None]
  - Blood glucose increased [None]
  - Haemoglobin decreased [None]
  - Paralysis [None]
  - Hypercapnia [None]
  - Myxoedema coma [None]
